FAERS Safety Report 22634089 (Version 1)
Quarter: 2023Q2

REPORT INFORMATION
  Report Type: Spontaneous
  Country: CA (occurrence: None)
  Receive Date: 20230623
  Receipt Date: 20230623
  Transmission Date: 20230721
  Serious: Yes (Other)
  Sender: FDA-Public Use
  Company Number: 2023A082648

PATIENT
  Age: 42 Year
  Sex: Female

DRUGS (5)
  1. FULVESTRANT [Suspect]
     Active Substance: FULVESTRANT
     Indication: Breast cancer
  2. FULVESTRANT [Suspect]
     Active Substance: FULVESTRANT
     Indication: Breast cancer
  3. IBRANCE [Suspect]
     Active Substance: PALBOCICLIB
     Indication: Breast cancer
     Route: 048
  4. PALBOCICLIB ISETHIONATE [Suspect]
     Active Substance: PALBOCICLIB ISETHIONATE
     Dosage: UNKNOWN
  5. RIBOCICLIB [Suspect]
     Active Substance: RIBOCICLIB
     Dosage: UNKNOWN
     Route: 048

REACTIONS (5)
  - Hepatitis [Unknown]
  - Neutropenia [Unknown]
  - Cytopenia [Unknown]
  - Disease progression [Unknown]
  - Metastases to spinal cord [Unknown]
